FAERS Safety Report 16711466 (Version 1)
Quarter: 2019Q3

REPORT INFORMATION
  Report Type: Spontaneous
  Country: US (occurrence: US)
  Receive Date: 20190816
  Receipt Date: 20190816
  Transmission Date: 20191004
  Serious: No
  Sender: FDA-Public Use
  Company Number: US-SA-2019SA220618

PATIENT
  Age: 58 Year
  Sex: Female

DRUGS (22)
  1. BIOTIN [Concomitant]
     Active Substance: BIOTIN
  2. BUMETANIDE. [Concomitant]
     Active Substance: BUMETANIDE
  3. GABAPENTIN. [Concomitant]
     Active Substance: GABAPENTIN
  4. IBUPROFEN. [Concomitant]
     Active Substance: IBUPROFEN
  5. ZYRTEC [Concomitant]
     Active Substance: CETIRIZINE HYDROCHLORIDE
  6. MAGNESIUM [Concomitant]
     Active Substance: MAGNESIUM
  7. TRESIBA [Concomitant]
     Active Substance: INSULIN DEGLUDEC
  8. FLUCONAZOLE. [Concomitant]
     Active Substance: FLUCONAZOLE
  9. HYDROXYZINE [Concomitant]
     Active Substance: HYDROXYZINE HYDROCHLORIDE
  10. CYCLOBENZAPRINE. [Concomitant]
     Active Substance: CYCLOBENZAPRINE
  11. PREMARIN [Concomitant]
     Active Substance: ESTROGENS, CONJUGATED
  12. METFORMIN [Concomitant]
     Active Substance: METFORMIN HYDROCHLORIDE
  13. SPIRONOLACTONE. [Concomitant]
     Active Substance: SPIRONOLACTONE
  14. DUPIXENT [Suspect]
     Active Substance: DUPILUMAB
     Indication: TYPE V HYPERLIPIDAEMIA
     Dosage: UNK, QOW
     Route: 058
     Dates: start: 20190601
  15. TRULICITY [Concomitant]
     Active Substance: DULAGLUTIDE
  16. DULOXETINE. [Concomitant]
     Active Substance: DULOXETINE
  17. AMITRIPTYLINE [Concomitant]
     Active Substance: AMITRIPTYLINE
  18. FOLIC ACID. [Concomitant]
     Active Substance: FOLIC ACID
  19. AZATHIOPRINE. [Concomitant]
     Active Substance: AZATHIOPRINE
  20. ZINC SULFATE. [Concomitant]
     Active Substance: ZINC SULFATE
  21. LANSOPRAZOLE. [Concomitant]
     Active Substance: LANSOPRAZOLE
  22. HALOBETASOL PROPIONATE. [Concomitant]
     Active Substance: HALOBETASOL PROPIONATE

REACTIONS (3)
  - Nodule [Unknown]
  - Condition aggravated [Unknown]
  - Contusion [Unknown]

NARRATIVE: CASE EVENT DATE: 2019
